FAERS Safety Report 11539254 (Version 2)
Quarter: 2015Q3

REPORT INFORMATION
  Report Type: Spontaneous
  Country: US (occurrence: US)
  Receive Date: 20150923
  Receipt Date: 20150925
  Transmission Date: 20151125
  Serious: No
  Sender: FDA-Public Use
  Company Number: US-PFIZER INC-2015308126

PATIENT
  Age: 47 Year
  Sex: Female
  Weight: 52 kg

DRUGS (2)
  1. LYRICA [Suspect]
     Active Substance: PREGABALIN
     Indication: PAIN
  2. LYRICA [Suspect]
     Active Substance: PREGABALIN
     Indication: COMPLEX REGIONAL PAIN SYNDROME
     Dosage: 100 MG, DAILY AT NIGHT (2-50MG BY MOUTH TOTAL 100MG)
     Route: 048
     Dates: start: 20150911, end: 20150911

REACTIONS (15)
  - Hypoaesthesia [Recovering/Resolving]
  - Activities of daily living impaired [Unknown]
  - Vision blurred [Not Recovered/Not Resolved]
  - Limb discomfort [Not Recovered/Not Resolved]
  - Asthenia [Recovering/Resolving]
  - Somnolence [Recovering/Resolving]
  - Muscular weakness [Recovered/Resolved]
  - Dizziness [Recovered/Resolved]
  - Gait disturbance [Recovered/Resolved]
  - Foot deformity [Not Recovered/Not Resolved]
  - Ataxia [Recovered/Resolved]
  - Movement disorder [Unknown]
  - Muscular weakness [Unknown]
  - Swelling face [Recovered/Resolved]
  - Product use issue [Unknown]

NARRATIVE: CASE EVENT DATE: 201509
